FAERS Safety Report 23512365 (Version 1)
Quarter: 2024Q1

REPORT INFORMATION
  Report Type: Spontaneous
  Country: US (occurrence: US)
  Receive Date: 20240212
  Receipt Date: 20240212
  Transmission Date: 20240410
  Serious: No
  Sender: FDA-Public Use
  Company Number: US-AMNEAL PHARMACEUTICALS-2023-AMRX-01056

PATIENT
  Sex: Female

DRUGS (1)
  1. ALOSETRON HYDROCHLORIDE [Suspect]
     Active Substance: ALOSETRON HYDROCHLORIDE
     Indication: Irritable bowel syndrome
     Dosage: 1 MG TABLET
     Route: 048

REACTIONS (2)
  - Urticaria [Unknown]
  - Pruritus [Unknown]
